FAERS Safety Report 7217661-4 (Version None)
Quarter: 2011Q1

REPORT INFORMATION
  Report Type: 
  Country: None (occurrence: None)
  Receive Date: 20110110
  Receipt Date: 20110103
  Transmission Date: 20110831
  Serious: Yes (Other)
  Sender: FDA-Public Use
  Company Number: US-ROCHE-751524

PATIENT
  Age: 70 Year
  Sex: Female

DRUGS (2)
  1. BONIVA [Suspect]
     Route: 065
  2. BONIVA [Suspect]
     Route: 065
     Dates: start: 20080101

REACTIONS (2)
  - TOOTH FRACTURE [None]
  - GASTRIC DISORDER [None]
